FAERS Safety Report 11075999 (Version 1)
Quarter: 2015Q2

REPORT INFORMATION
  Report Type: Spontaneous
  Country: US (occurrence: US)
  Receive Date: 20150429
  Receipt Date: 20150429
  Transmission Date: 20150821
  Serious: No
  Sender: FDA-Public Use
  Company Number: US-MYLANLABS-2014S1017741

PATIENT
  Age: 69 Year
  Sex: Female

DRUGS (1)
  1. DOXYCYCLINE. [Suspect]
     Active Substance: DOXYCYCLINE

REACTIONS (2)
  - Malaise [Not Recovered/Not Resolved]
  - Drug hypersensitivity [Not Recovered/Not Resolved]
